FAERS Safety Report 4714376-9 (Version None)
Quarter: 2005Q3

REPORT INFORMATION
  Report Type: 
  Country: None (occurrence: None)
  Receive Date: 20050714
  Receipt Date: 20050630
  Transmission Date: 20060218
  Serious: Yes (Hospitalization)
  Sender: FDA-Public Use
  Company Number: US-KINGPHARMUSA00001-K200500915

PATIENT
  Age: 51 Year
  Sex: Female
  Weight: 83 kg

DRUGS (7)
  1. ALTACE [Suspect]
     Indication: BLOOD PRESSURE
     Dosage: 10 MG, QAM
     Route: 048
     Dates: start: 20040401, end: 20050601
  2. METFORMIN [Concomitant]
     Indication: DIABETES MELLITUS
     Dosage: 1000 MG, BID
     Route: 048
  3. ACTOS /CAN/ [Concomitant]
     Indication: DIABETES MELLITUS
     Dosage: 15 MG, QD
     Route: 048
     Dates: start: 20050101
  4. LANTUS [Concomitant]
     Indication: DIABETES MELLITUS
     Dosage: 44 U, QHS
     Route: 058
  5. ASPIRIN [Concomitant]
     Dosage: 81 MG, QHS
     Route: 048
  6. LIPITOR /NET/ [Concomitant]
     Indication: BLOOD CHOLESTEROL
     Dosage: 80 MG, QHS
     Route: 048
     Dates: start: 20040101
  7. NOVOLOG [Concomitant]
     Indication: DIABETES MELLITUS
     Dosage: BEFORE MEALS
     Route: 058

REACTIONS (9)
  - ANOREXIA [None]
  - CHEST PAIN [None]
  - DYSGEUSIA [None]
  - FATIGUE [None]
  - FEELING ABNORMAL [None]
  - INSOMNIA [None]
  - NAUSEA [None]
  - NERVOUSNESS [None]
  - PALPITATIONS [None]
